FAERS Safety Report 7328227-X (Version None)
Quarter: 2011Q1

REPORT INFORMATION
  Report Type: 
  Country: None (occurrence: None)
  Receive Date: 20110218
  Receipt Date: 20110202
  Transmission Date: 20110831
  Serious: Yes (Hospitalization)
  Sender: FDA-Public Use
  Company Number: 2011MA001064

PATIENT
  Age: 49 Year
  Sex: Female

DRUGS (3)
  1. CON MEDS [Concomitant]
  2. PROPYLTHIOURACIL [Suspect]
     Indication: HYPERTHYROIDISM
     Dosage: 50 MG, QD, PO
     Route: 048
     Dates: start: 20051001
  3. PREV MEDS [Concomitant]

REACTIONS (3)
  - ALANINE AMINOTRANSFERASE INCREASED [None]
  - LIVER INJURY [None]
  - JAUNDICE [None]
